FAERS Safety Report 24978780 (Version 1)
Quarter: 2025Q1

REPORT INFORMATION
  Report Type: Spontaneous
  Country: US (occurrence: US)
  Receive Date: 20250218
  Receipt Date: 20250218
  Transmission Date: 20250409
  Serious: Yes (Other)
  Sender: Steriscience PTE
  Company Number: US-STERISCIENCE B.V.-2024-ST-002239

PATIENT
  Age: 74 Year
  Sex: Female

DRUGS (2)
  1. THIAMINE [Suspect]
     Active Substance: THIAMINE
     Indication: Wernicke^s encephalopathy
     Route: 042
  2. Immunoglobulin [Concomitant]
     Indication: COVID-19
     Route: 042

REACTIONS (1)
  - Drug ineffective [Unknown]
